FAERS Safety Report 13680043 (Version 1)
Quarter: 2017Q2

REPORT INFORMATION
  Report Type: Spontaneous
  Country: US (occurrence: US)
  Receive Date: 20170622
  Receipt Date: 20170622
  Transmission Date: 20170830
  Serious: No
  Sender: FDA-Public Use
  Company Number: US-PFIZER INC-2017271662

PATIENT
  Age: 74 Year
  Sex: Female

DRUGS (1)
  1. BOSULIF [Suspect]
     Active Substance: BOSUTINIB MONOHYDRATE
     Dosage: 500 MG, 1X/DAY, (TAKES IT IN THE MORNING WITH FOOD)
     Route: 048
     Dates: start: 20170613

REACTIONS (2)
  - Diarrhoea [Unknown]
  - Migraine [Recovering/Resolving]
